FAERS Safety Report 7218415-5 (Version None)
Quarter: 2011Q1

REPORT INFORMATION
  Report Type: 
  Country: None (occurrence: None)
  Receive Date: 20110110
  Receipt Date: 20110104
  Transmission Date: 20110831
  Serious: Yes (Other)
  Sender: FDA-Public Use
  Company Number: BR-PFIZER INC-2011001533

PATIENT
  Age: 35 Year
  Sex: Male
  Weight: 36 kg

DRUGS (1)
  1. ZYVOX [Suspect]
     Dosage: 600 MG, 2X/DAY
     Dates: start: 20100816

REACTIONS (1)
  - PHLEBITIS [None]
